FAERS Safety Report 18116150 (Version 1)
Quarter: 2020Q3

REPORT INFORMATION
  Report Type: Spontaneous
  Country: DE (occurrence: DE)
  Receive Date: 20200805
  Receipt Date: 20200805
  Transmission Date: 20201103
  Serious: Yes (Death)
  Sender: FDA-Public Use
  Company Number: DE-BAUSCH-BL-2020-021813

PATIENT
  Age: 56 Year
  Sex: Male

DRUGS (9)
  1. TETRACYCLINE [Suspect]
     Active Substance: TETRACYCLINE
     Indication: PERICARDIAL EFFUSION
  2. ERYTHROMYCIN. [Suspect]
     Active Substance: ERYTHROMYCIN
     Indication: ACTINOMYCOSIS
  3. CLINDAMYCIN PALMITATE HCL [Suspect]
     Active Substance: CLINDAMYCIN PALMITATE HYDROCHLORIDE
     Indication: PERICARDIAL EFFUSION
  4. CLINDAMYCIN PALMITATE HCL [Suspect]
     Active Substance: CLINDAMYCIN PALMITATE HYDROCHLORIDE
     Indication: ACTINOMYCOSIS
     Route: 065
  5. TETRACYCLINE [Suspect]
     Active Substance: TETRACYCLINE
     Indication: ACTINOMYCOSIS
     Route: 065
  6. ERYTHROMYCIN. [Suspect]
     Active Substance: ERYTHROMYCIN
     Indication: PLEURAL EFFUSION
     Route: 065
  7. TETRACYCLINE [Suspect]
     Active Substance: TETRACYCLINE
     Indication: PLEURAL EFFUSION
  8. ERYTHROMYCIN. [Suspect]
     Active Substance: ERYTHROMYCIN
     Indication: PERICARDIAL EFFUSION
  9. CLINDAMYCIN PALMITATE HCL [Suspect]
     Active Substance: CLINDAMYCIN PALMITATE HYDROCHLORIDE
     Indication: PLEURAL EFFUSION

REACTIONS (2)
  - Drug ineffective [Fatal]
  - Septic shock [Fatal]
